FAERS Safety Report 6679747-2 (Version None)
Quarter: 2010Q2

REPORT INFORMATION
  Report Type: 
  Country: None (occurrence: None)
  Receive Date: 20100413
  Receipt Date: 20100408
  Transmission Date: 20101027
  Serious: Yes (Other)
  Sender: FDA-Public Use
  Company Number: US-BRISTOL-MYERS SQUIBB COMPANY-14976781

PATIENT
  Age: 45 Year
  Sex: Male

DRUGS (2)
  1. COUMADIN [Suspect]
     Dosage: 1DF = 5MG (SUNDAY,WEDNESDAY, FRIDAY) AND 2.5MG(MONDAY,TUESDAY,THURSDAY).
     Route: 048
     Dates: start: 20091117
  2. LOVENOX [Suspect]
     Dates: start: 20091112

REACTIONS (3)
  - DEEP VEIN THROMBOSIS [None]
  - INTERNATIONAL NORMALISED RATIO DECREASED [None]
  - PULMONARY EMBOLISM [None]
